FAERS Safety Report 21466462 (Version 1)
Quarter: 2022Q4

REPORT INFORMATION
  Report Type: Spontaneous
  Country: US (occurrence: None)
  Receive Date: 20221015
  Receipt Date: 20221015
  Transmission Date: 20230112
  Serious: Yes (Other)
  Sender: FDA-Public Use
  Company Number: None

PATIENT
  Age: 59 Year
  Sex: Female

DRUGS (1)
  1. XEOMIN [Suspect]
     Active Substance: INCOBOTULINUMTOXINA
     Indication: Cardiovascular disorder
     Dosage: FREQUENCY : ONCE;?
     Route: 030
     Dates: start: 20220929, end: 20220929

REACTIONS (3)
  - Asthenia [None]
  - Hypoaesthesia [None]
  - Urinary incontinence [None]

NARRATIVE: CASE EVENT DATE: 20221007
